FAERS Safety Report 15432778 (Version 2)
Quarter: 2018Q4

REPORT INFORMATION
  Report Type: Report from Study
  Country: None (occurrence: US)
  Receive Date: 20180927
  Receipt Date: 20181004
  Transmission Date: 20190204
  Serious: Yes (Death, Hospitalization)
  Sender: FDA-Public Use
  Company Number: US-ABBVIE-18S-163-2499804-00

PATIENT
  Age: 84 Year
  Sex: Female

DRUGS (1)
  1. CREON [Suspect]
     Active Substance: PANCRELIPASE AMYLASE\PANCRELIPASE LIPASE\PANCRELIPASE PROTEASE
     Indication: PRODUCT USED FOR UNKNOWN INDICATION
     Dosage: 8 PER DAY. WITH MEALS
     Route: 048

REACTIONS (4)
  - Haemorrhagic stroke [Fatal]
  - Cold sweat [Fatal]
  - Headache [Fatal]
  - Dizziness [Fatal]

NARRATIVE: CASE EVENT DATE: 20180918
